FAERS Safety Report 8410542-X (Version None)
Quarter: 2012Q2

REPORT INFORMATION
  Report Type: 
  Country: None (occurrence: None)
  Receive Date: 20120323
  Receipt Date: 20111201
  Transmission Date: 20120825
  Serious: Yes (Other)
  Sender: FDA-Public Use
  Company Number: 163-21880-11120387

PATIENT
  Age: 62 Year
  Sex: Male

DRUGS (7)
  1. VITAMIN D (ERGOCALCIFEROL)(UNKNOWN) [Concomitant]
  2. AVAPRO (IRBESARTAN)(UNKNOWN) [Concomitant]
  3. CALCIUM (CALCIUM)(UNKNOWN) [Concomitant]
  4. GLUCOSAMINE/CHONDRITIN (CHONDROITIN SODIUM SULFATE W/GLUCOSAMINE HCL)( [Concomitant]
  5. REVLIMID [Suspect]
     Indication: MULTIPLE MYELOMA
     Dosage: 25 MG, DAILY X 21 DAYS, PO
     Route: 048
     Dates: start: 20091001
  6. LIPITOR [Concomitant]
  7. MULTIVITAMIN (MULTIVITAMINS)(UNKNOWN) [Concomitant]

REACTIONS (1)
  - FULL BLOOD COUNT DECREASED [None]
